FAERS Safety Report 6573365-2 (Version None)
Quarter: 2010Q1

REPORT INFORMATION
  Report Type: 
  Country: None (occurrence: None)
  Receive Date: 20100204
  Receipt Date: 20100204
  Transmission Date: 20100710
  Serious: Yes (Other)
  Sender: FDA-Public Use
  Company Number: None

PATIENT
  Age: 42 Year
  Sex: Female
  Weight: 50.8029 kg

DRUGS (3)
  1. MUCINEX [Suspect]
     Indication: EAR DISORDER
     Dosage: 600 MG 1 TABLET TWICE DAILY
     Dates: start: 20100114
  2. MUCINEX [Suspect]
     Indication: EFFUSION
     Dosage: 600 MG 1 TABLET TWICE DAILY
     Dates: start: 20100114
  3. NASONEX [Suspect]
     Dosage: 50 MCG 1 SPRAY, TWICE A DAY
     Dates: start: 20100114

REACTIONS (2)
  - CONVULSION [None]
  - OROPHARYNGEAL PAIN [None]
